FAERS Safety Report 9832047 (Version 2)
Quarter: 2014Q1

REPORT INFORMATION
  Report Type: Report from Study
  Country: GB (occurrence: GB)
  Receive Date: 20140121
  Receipt Date: 20140127
  Transmission Date: 20141002
  Serious: Yes (Hospitalization)
  Sender: FDA-Public Use
  Company Number: GB-PFIZER INC-2014013023

PATIENT
  Age: 67 Year
  Sex: Male

DRUGS (2)
  1. OXALIPLATIN [Suspect]
     Indication: COLON CANCER
     Dosage: 6 CYCLES
  2. FLUOROURACIL [Suspect]
     Indication: COLON CANCER
     Dosage: 6 CYCLES

REACTIONS (2)
  - Nodular regenerative hyperplasia [Unknown]
  - Venoocclusive liver disease [Unknown]
